FAERS Safety Report 20196086 (Version 1)
Quarter: 2021Q4

REPORT INFORMATION
  Report Type: Spontaneous
  Country: US (occurrence: US)
  Receive Date: 20211216
  Receipt Date: 20211216
  Transmission Date: 20220303
  Serious: Yes (Other)
  Sender: FDA-Public Use
  Company Number: US-BIOGEN-2021BI01076405

PATIENT
  Age: 35 Year
  Sex: Male

DRUGS (1)
  1. VUMERITY [Suspect]
     Active Substance: DIROXIMEL FUMARATE
     Indication: Multiple sclerosis
     Route: 048
     Dates: start: 20210901, end: 20211129

REACTIONS (10)
  - Blindness [Unknown]
  - Multiple sclerosis relapse [Unknown]
  - Musculoskeletal disorder [Unknown]
  - Central nervous system lesion [Unknown]
  - Tremor [Unknown]
  - Muscular weakness [Unknown]
  - Pain [Unknown]
  - Illness [Unknown]
  - Underdose [Unknown]
  - Diarrhoea [Unknown]

NARRATIVE: CASE EVENT DATE: 20210901
